FAERS Safety Report 14652292 (Version 1)
Quarter: 2018Q1

REPORT INFORMATION
  Report Type: Spontaneous
  Country: US (occurrence: US)
  Receive Date: 20180316
  Receipt Date: 20180316
  Transmission Date: 20180509
  Serious: Yes (Hospitalization)
  Sender: FDA-Public Use
  Company Number: None

PATIENT
  Age: 81 Year
  Sex: Female
  Weight: 90 kg

DRUGS (2)
  1. TAXOL [Suspect]
     Active Substance: PACLITAXEL
     Dates: end: 20140618
  2. CARBOPLATIN. [Suspect]
     Active Substance: CARBOPLATIN
     Dates: end: 20140618

REACTIONS (5)
  - Haematochezia [None]
  - Febrile neutropenia [None]
  - Pancytopenia [None]
  - Myelodysplastic syndrome [None]
  - Pneumonia [None]

NARRATIVE: CASE EVENT DATE: 20180213
